FAERS Safety Report 15887259 (Version 9)
Quarter: 2019Q2

REPORT INFORMATION
  Report Type: Spontaneous
  Country: JP (occurrence: JP)
  Receive Date: 20190130
  Receipt Date: 20190607
  Transmission Date: 20190711
  Serious: Yes (Hospitalization, Other)
  Sender: FDA-Public Use
  Company Number: JP-BRISTOL-MYERS SQUIBB COMPANY-BMS-2019-008090

PATIENT
  Age: 53 Year
  Sex: Male
  Weight: 77 kg

DRUGS (9)
  1. ERBITUX [Suspect]
     Active Substance: CETUXIMAB
     Indication: METASTASES TO LUNG
     Dosage: 400 MILLIGRAM/SQ. METER, QWK
     Route: 041
     Dates: start: 20160223, end: 20180112
  2. ERBITUX [Suspect]
     Active Substance: CETUXIMAB
     Indication: PRODUCT USED FOR UNKNOWN INDICATION
     Dosage: 250 MILLIGRAM/SQ. METER, QWK
     Route: 041
     Dates: start: 20180517, end: 20181026
  3. PACLITAXEL. [Suspect]
     Active Substance: PACLITAXEL
     Indication: TONGUE NEOPLASM MALIGNANT STAGE UNSPECIFIED
     Dosage: UNK
     Route: 042
     Dates: start: 20160623, end: 20180112
  4. OPDIVO [Suspect]
     Active Substance: NIVOLUMAB
     Indication: HEAD AND NECK CANCER
     Dosage: 3 MILLIGRAM/KILOGRAM
     Route: 041
     Dates: start: 20180201, end: 20180426
  5. ERBITUX [Suspect]
     Active Substance: CETUXIMAB
     Indication: TONGUE NEOPLASM MALIGNANT STAGE UNSPECIFIED
     Dosage: UNK
     Route: 041
     Dates: start: 20151106, end: 20151225
  6. AZITHROMYCIN ANHYDROUS. [Concomitant]
     Active Substance: AZITHROMYCIN ANHYDROUS
     Indication: PNEUMONIA BACTERIAL
     Dosage: UNK
     Route: 065
     Dates: start: 201808
  7. CLAVULANATE POTASSIUM [Concomitant]
     Active Substance: CLAVULANATE POTASSIUM
     Indication: PNEUMONIA BACTERIAL
     Dosage: UNK
     Route: 065
     Dates: start: 201808
  8. PACLITAXEL. [Suspect]
     Active Substance: PACLITAXEL
     Indication: METASTASES TO LUNG
     Route: 065
  9. AMOXICILLIN HYDRATE [Concomitant]
     Active Substance: AMOXICILLIN
     Indication: PNEUMONIA BACTERIAL
     Dosage: UNK
     Route: 065
     Dates: start: 201808

REACTIONS (4)
  - Bronchopulmonary aspergillosis [Unknown]
  - Eosinophilic pneumonia [Recovering/Resolving]
  - Aspergillus infection [Recovering/Resolving]
  - Pneumonia bacterial [Recovering/Resolving]

NARRATIVE: CASE EVENT DATE: 2018
